FAERS Safety Report 4830756-5 (Version None)
Quarter: 2005Q4

REPORT INFORMATION
  Report Type: 
  Country: None (occurrence: None)
  Receive Date: 20051117
  Receipt Date: 20050930
  Transmission Date: 20060501
  Serious: Yes (Hospitalization, Other)
  Sender: FDA-Public Use
  Company Number: US-MERCK-0510USA00748

PATIENT
  Age: 79 Year
  Sex: Male
  Weight: 73 kg

DRUGS (5)
  1. VIOXX [Suspect]
     Indication: ARTHRALGIA
     Route: 048
     Dates: start: 20001001, end: 20010530
  2. HYDROCODONE BITARTRATE [Concomitant]
     Route: 065
  3. LIPITOR [Concomitant]
     Route: 065
  4. TRIAMTERENE [Concomitant]
     Route: 065
  5. DOXAZOSIN MESYLATE [Concomitant]
     Route: 065

REACTIONS (3)
  - DEHYDRATION [None]
  - ISCHAEMIC STROKE [None]
  - MYOCARDIAL INFARCTION [None]
